FAERS Safety Report 11926401 (Version 1)
Quarter: 2016Q1

REPORT INFORMATION
  Report Type: Spontaneous
  Country: MX (occurrence: MX)
  Receive Date: 20160119
  Receipt Date: 20160119
  Transmission Date: 20160526
  Serious: Yes (Disabling)
  Sender: FDA-Public Use
  Company Number: MX-SA-2016SA007081

PATIENT
  Age: 67 Year
  Sex: Female
  Weight: 64 kg

DRUGS (1)
  1. ARAVA [Suspect]
     Active Substance: LEFLUNOMIDE
     Indication: RHEUMATOID ARTHRITIS
     Route: 048
     Dates: start: 2006

REACTIONS (1)
  - Eye haemorrhage [Recovered/Resolved with Sequelae]

NARRATIVE: CASE EVENT DATE: 201310
